FAERS Safety Report 4311172-1 (Version None)
Quarter: 2004Q1

REPORT INFORMATION
  Report Type: 
  Country: None (occurrence: None)
  Receive Date: 20040302
  Receipt Date: 20040218
  Transmission Date: 20041129
  Serious: Yes (Life-Threatening, Hospitalization)
  Sender: FDA-Public Use
  Company Number: 04P-087-0250801-00

PATIENT
  Age: 72 Year
  Sex: Female

DRUGS (4)
  1. CEFZON CAPSULES (OMNICEF) (CEFDINIR) (CEFDINIR) [Suspect]
     Indication: PHARYNGITIS
     Dosage: 100 MG, 3 IN 1 D, PER ORAL
     Route: 048
     Dates: start: 20040130, end: 20040130
  2. PRANOPROFEN [Suspect]
     Indication: PHARYNGITIS
     Dates: start: 20040130
  3. SERRAPEPTASE [Concomitant]
  4. DEXTROMETHORPHAN HYDROBROMIDE [Concomitant]

REACTIONS (4)
  - ASTHMA [None]
  - CYANOSIS [None]
  - DEPRESSED LEVEL OF CONSCIOUSNESS [None]
  - DRUG HYPERSENSITIVITY [None]
